FAERS Safety Report 24840609 (Version 2)
Quarter: 2025Q1

REPORT INFORMATION
  Report Type: Spontaneous
  Country: KR (occurrence: KR)
  Receive Date: 20250114
  Receipt Date: 20250128
  Transmission Date: 20250409
  Serious: No
  Sender: REGENERON
  Company Number: KR-BAYER-2025A004397

PATIENT
  Age: 46 Year
  Sex: Male

DRUGS (3)
  1. EYLEA HD [Suspect]
     Active Substance: AFLIBERCEPT
     Indication: Product used for unknown indication
     Dates: start: 20241028, end: 20241028
  2. EYLEA HD [Suspect]
     Active Substance: AFLIBERCEPT
     Dates: start: 20241128, end: 20241128
  3. EYLEA HD [Suspect]
     Active Substance: AFLIBERCEPT
     Dates: start: 20241226, end: 20241226

REACTIONS (3)
  - Eye inflammation [Unknown]
  - Vitreous floaters [Unknown]
  - Vitreal cells [Unknown]
